FAERS Safety Report 14474313 (Version 3)
Quarter: 2018Q1

REPORT INFORMATION
  Report Type: Spontaneous
  Country: US (occurrence: US)
  Receive Date: 20180201
  Receipt Date: 20180212
  Transmission Date: 20180509
  Serious: No
  Sender: FDA-Public Use
  Company Number: US-JNJFOC-20180120610

PATIENT
  Sex: Female
  Weight: 83.92 kg

DRUGS (1)
  1. XARELTO [Suspect]
     Active Substance: RIVAROXABAN
     Indication: PULMONARY EMBOLISM
     Route: 048
     Dates: start: 20150812

REACTIONS (11)
  - Headache [Unknown]
  - Toothache [Unknown]
  - Influenza [Recovered/Resolved]
  - Sinusitis [Recovered/Resolved]
  - Eye pain [Unknown]
  - Product label issue [Unknown]
  - Alopecia [Not Recovered/Not Resolved]
  - Malaise [Recovered/Resolved]
  - Bronchitis [Recovered/Resolved]
  - Cough [Not Recovered/Not Resolved]
  - Wrong technique in product usage process [Unknown]

NARRATIVE: CASE EVENT DATE: 2017
